FAERS Safety Report 4559500-6 (Version None)
Quarter: 2005Q1

REPORT INFORMATION
  Report Type: 
  Country: None (occurrence: None)
  Receive Date: 20050119
  Receipt Date: 20050107
  Transmission Date: 20050727
  Serious: Yes (Other)
  Sender: FDA-Public Use
  Company Number: 2004094354

PATIENT
  Age: 51 Year
  Sex: Female
  Weight: 43.5 kg

DRUGS (8)
  1. PROVERA [Suspect]
     Indication: MENOPAUSAL SYMPTOMS
     Dosage: 2.5 MG (2.5 MG, QD), ORAL
     Route: 048
     Dates: start: 20030930, end: 20040928
  2. ESTRADIOL [Suspect]
     Indication: MENOPAUSAL SYMPTOMS
     Dosage: (4.33 MG, TWICE A WEEK), TRANSDERMAL
     Route: 062
     Dates: start: 20030930, end: 20040928
  3. KAKKONTOU (HERBAL EXTRACTS NOS) [Concomitant]
  4. FEXOFENADINE HYDROCHLORIDE [Concomitant]
  5. NEO-MEDROL (METHYLPREDNISOLONE ACETATE, NEOMYCIN SULFATE) [Concomitant]
  6. FLUOROMETHOLONE (FLUOROMETHOLONE) [Concomitant]
  7. ORNAL (DIPHENYLPYRALINE HYDROCHLORIDE, ISOPROPAMIDE IODIDE, PHENYLPROP [Concomitant]
  8. CEFTIRIZINE HYDROCHLORIDE (CETIRIZINE HYDROCHLORIDE) [Concomitant]

REACTIONS (1)
  - BREAST CANCER [None]
